FAERS Safety Report 8829298 (Version 1)
Quarter: 2012Q4

REPORT INFORMATION
  Report Type: Spontaneous
  Country: BR (occurrence: None)
  Receive Date: 20121004
  Receipt Date: 20121004
  Transmission Date: 20130627
  Serious: Yes (Hospitalization)
  Sender: FDA-Public Use
  Company Number: IMP_06007_2012

PATIENT
  Sex: Male

DRUGS (2)
  1. CABERGOLINE [Suspect]
     Indication: BLOOD PROLACTIN INCREASED
  2. CABERGOLINE [Suspect]
     Indication: BLOOD PROLACTIN INCREASED

REACTIONS (5)
  - Visual acuity reduced [None]
  - Neoplasm [None]
  - Visual pathway disorder [None]
  - Tumour compression [None]
  - Intracranial tumour haemorrhage [None]
